FAERS Safety Report 18787491 (Version 1)
Quarter: 2021Q1

REPORT INFORMATION
  Report Type: Spontaneous
  Country: CN (occurrence: CN)
  Receive Date: 20210126
  Receipt Date: 20210126
  Transmission Date: 20210419
  Serious: Yes (Other)
  Sender: FDA-Public Use
  Company Number: CN-PFIZER INC-2021051514

PATIENT
  Age: 16 Month
  Sex: Female
  Weight: 11.5 kg

DRUGS (1)
  1. UNASYN [Suspect]
     Active Substance: AMPICILLIN SODIUM\SULBACTAM SODIUM
     Indication: PNEUMONIA
     Dosage: 0.55 G, 3X/DAY
     Route: 041
     Dates: start: 20210118, end: 20210118

REACTIONS (3)
  - Drug eruption [Unknown]
  - Rash maculo-papular [Recovering/Resolving]
  - Skin oedema [Unknown]

NARRATIVE: CASE EVENT DATE: 20210118
